FAERS Safety Report 5847503-0 (Version None)
Quarter: 2008Q3

REPORT INFORMATION
  Report Type: 
  Country: None (occurrence: None)
  Receive Date: 20080814
  Receipt Date: 20080730
  Transmission Date: 20090109
  Serious: Yes (Hospitalization, Other)
  Sender: FDA-Public Use
  Company Number: 2008BI016546

PATIENT
  Age: 52 Year
  Sex: Male

DRUGS (6)
  1. TYSABRI [Suspect]
     Indication: MULTIPLE SCLEROSIS
     Dosage: 300 MG;QM;IV
     Route: 042
     Dates: start: 20071025, end: 20080530
  2. LEXAPRO [Concomitant]
  3. NEXIUM [Concomitant]
  4. ZANAFELX [Concomitant]
  5. AMANTADINE HCL [Concomitant]
  6. DETROL LA [Concomitant]

REACTIONS (21)
  - BLOOD PRESSURE INCREASED [None]
  - CEREBRAL HAEMORRHAGE [None]
  - CONDITION AGGRAVATED [None]
  - CONFUSIONAL STATE [None]
  - CONTUSION [None]
  - COUGH [None]
  - DYSPHAGIA [None]
  - EYE MOVEMENT DISORDER [None]
  - FALL [None]
  - HAEMOGLOBIN INCREASED [None]
  - HEAD INJURY [None]
  - HYPERREFLEXIA [None]
  - INCONTINENCE [None]
  - LACERATION [None]
  - MULTIPLE SCLEROSIS [None]
  - SPEECH DISORDER [None]
  - SUBARACHNOID HAEMORRHAGE [None]
  - TREMOR [None]
  - URINE KETONE BODY PRESENT [None]
  - VENTRICULAR EXTRASYSTOLES [None]
  - WHITE BLOOD CELL COUNT INCREASED [None]
